FAERS Safety Report 7317385-9 (Version None)
Quarter: 2011Q1

REPORT INFORMATION
  Report Type: 
  Country: None (occurrence: None)
  Receive Date: 20110226
  Receipt Date: 20101223
  Transmission Date: 20110831
  Serious: No
  Sender: FDA-Public Use
  Company Number: US-ALLERGAN-1010574US

PATIENT
  Age: 55 Year
  Sex: Female
  Weight: 56.689 kg

DRUGS (4)
  1. BOTOX COSMETIC [Suspect]
     Indication: SKIN WRINKLING
     Dosage: 25 UNITS, SINGLE
     Route: 030
     Dates: start: 20100701, end: 20100701
  2. BOTOX COSMETIC [Suspect]
     Dosage: 12 UNITS, SINGLE
     Route: 030
     Dates: start: 20100722, end: 20100722
  3. BOTOX COSMETIC [Suspect]
     Dosage: 11 UNITS, SINGLE
     Route: 030
     Dates: start: 20100804, end: 20100804
  4. BOTOX COSMETIC [Suspect]
     Dosage: 7 UNITS, SINGLE
     Route: 030
     Dates: start: 20100812, end: 20100812

REACTIONS (3)
  - MUSCLE SPASMS [None]
  - PARAESTHESIA [None]
  - MUSCULAR WEAKNESS [None]
